FAERS Safety Report 4591035-7 (Version None)
Quarter: 2005Q1

REPORT INFORMATION
  Report Type: 
  Country: None (occurrence: None)
  Receive Date: 20050225
  Receipt Date: 20050215
  Transmission Date: 20050727
  Serious: Yes (Other)
  Sender: FDA-Public Use
  Company Number: FR-BRISTOL-MYERS SQUIBB COMPANY-12872420

PATIENT
  Sex: Female

DRUGS (4)
  1. ERBITUX [Suspect]
     Indication: RECTAL CANCER
     Route: 042
     Dates: start: 20050115, end: 20050122
  2. CAMPTO [Concomitant]
     Indication: RECTAL CANCER
     Route: 042
  3. FLUOROURACIL [Concomitant]
     Indication: RECTAL CANCER
     Route: 042
  4. FOLINIC ACID [Concomitant]
     Indication: RECTAL CANCER

REACTIONS (1)
  - FEMALE GENITAL-DIGESTIVE TRACT FISTULA [None]
